FAERS Safety Report 7633883-2 (Version None)
Quarter: 2011Q3

REPORT INFORMATION
  Report Type: 
  Country: None (occurrence: None)
  Receive Date: 20110725
  Receipt Date: 20110721
  Transmission Date: 20111222
  Serious: Yes (Death)
  Sender: FDA-Public Use
  Company Number: PHHY2011KR65641

PATIENT

DRUGS (3)
  1. ADRIAMYCIN PFS [Suspect]
     Indication: BONE SARCOMA
  2. METHOTREXATE [Suspect]
     Indication: BONE SARCOMA
  3. CISPLATIN [Suspect]
     Indication: BONE SARCOMA

REACTIONS (3)
  - MENTAL STATUS CHANGES [None]
  - CONVULSION [None]
  - WERNICKE'S ENCEPHALOPATHY [None]
